FAERS Safety Report 6198384-X (Version None)
Quarter: 2009Q2

REPORT INFORMATION
  Report Type: 
  Country: None (occurrence: None)
  Receive Date: 20090519
  Receipt Date: 20090506
  Transmission Date: 20091009
  Serious: Yes (Hospitalization)
  Sender: FDA-Public Use
  Company Number: 234380K09USA

PATIENT
  Age: 38 Year
  Sex: Female
  Weight: 119 kg

DRUGS (4)
  1. REBIF [Suspect]
     Indication: MULTIPLE SCLEROSIS
     Dosage: 8.8 MCG, 3 IN 1 WEEKS, SUBCUTANEOUS
     Route: 058
     Dates: start: 20090403
  2. LISINOPRIL [Concomitant]
  3. DIOVAN [Concomitant]
  4. MELOXICAM [Concomitant]

REACTIONS (3)
  - BENIGN OVARIAN TUMOUR [None]
  - OVARIAN CYST [None]
  - OVARIAN TORSION [None]
